FAERS Safety Report 17678730 (Version 3)
Quarter: 2020Q3

REPORT INFORMATION
  Report Type: Spontaneous
  Country: US (occurrence: US)
  Receive Date: 20200417
  Receipt Date: 20200904
  Transmission Date: 20201102
  Serious: Yes (Hospitalization, Other)
  Sender: FDA-Public Use
  Company Number: US-GILEAD-2020-0459240

PATIENT
  Age: 41 Year
  Sex: Male
  Weight: 72.11 kg

DRUGS (22)
  1. EPIVIR [Concomitant]
     Active Substance: LAMIVUDINE
  2. RETROVIR [Concomitant]
     Active Substance: ZIDOVUDINE
  3. REYATAZ [Concomitant]
     Active Substance: ATAZANAVIR SULFATE
  4. VIDEX EC [Concomitant]
     Active Substance: DIDANOSINE
  5. LISINOPRIL. [Concomitant]
     Active Substance: LISINOPRIL
  6. COMBIVIR [Concomitant]
     Active Substance: LAMIVUDINE\ZIDOVUDINE
  7. NORVIR [Concomitant]
     Active Substance: RITONAVIR
  8. TIVICAY [Concomitant]
     Active Substance: DOLUTEGRAVIR SODIUM
  9. DAPSONE. [Concomitant]
     Active Substance: DAPSONE
  10. TRUVADA [Suspect]
     Active Substance: EMTRICITABINE\TENOFOVIR DISOPROXIL FUMARATE
     Indication: HIV INFECTION
     Dosage: UNK
     Route: 048
     Dates: start: 201205, end: 201209
  11. ZERIT [Concomitant]
     Active Substance: STAVUDINE
  12. INTELENCE [Concomitant]
     Active Substance: ETRAVIRINE
  13. DESCOVY [Concomitant]
     Active Substance: EMTRICITABINE\TENOFOVIR ALAFENAMIDE FUMARATE
  14. LUNESTA [Concomitant]
     Active Substance: ESZOPICLONE
  15. VIREAD [Suspect]
     Active Substance: TENOFOVIR DISOPROXIL FUMARATE
     Indication: HIV INFECTION
     Dosage: UNK
     Route: 048
     Dates: start: 201209, end: 201604
  16. KALETRA [Concomitant]
     Active Substance: LOPINAVIR\RITONAVIR
  17. PREZISTA [Concomitant]
     Active Substance: DARUNAVIR ETHANOLATE
  18. SUSTIVA [Concomitant]
     Active Substance: EFAVIRENZ
  19. OXYCODONE [Concomitant]
     Active Substance: OXYCODONE
  20. VIDEX [Concomitant]
     Active Substance: DIDANOSINE
  21. ISENTRESS [Concomitant]
     Active Substance: RALTEGRAVIR POTASSIUM
  22. VITAMIN D NOS [Concomitant]
     Active Substance: VITAMIN D NOS

REACTIONS (11)
  - Mobility decreased [Unknown]
  - Acute kidney injury [Not Recovered/Not Resolved]
  - Emotional distress [Not Recovered/Not Resolved]
  - Anhedonia [Not Recovered/Not Resolved]
  - Unevaluable event [Unknown]
  - Dysuria [Unknown]
  - Anxiety [Not Recovered/Not Resolved]
  - Economic problem [Unknown]
  - Nephrolithiasis [Unknown]
  - Pain [Not Recovered/Not Resolved]
  - Acute kidney injury [Not Recovered/Not Resolved]

NARRATIVE: CASE EVENT DATE: 201205
